FAERS Safety Report 21363900 (Version 2)
Quarter: 2022Q3

REPORT INFORMATION
  Report Type: Spontaneous
  Country: DE (occurrence: DE)
  Receive Date: 20220922
  Receipt Date: 20220930
  Transmission Date: 20221026
  Serious: Yes (Hospitalization, Other)
  Sender: FDA-Public Use
  Company Number: DE-ANIPHARMA-2022-DE-000137

PATIENT
  Age: 67 Year
  Sex: Female

DRUGS (9)
  1. CANDESARTAN CILEXETIL AND HYDROCHLOROTHIAZIDE [Suspect]
     Active Substance: CANDESARTAN CILEXETIL\HYDROCHLOROTHIAZIDE
     Indication: Product used for unknown indication
     Dosage: 16/12.5 MILLIGRAM
     Route: 048
     Dates: end: 20200703
  2. METFORMIN [Suspect]
     Active Substance: METFORMIN HYDROCHLORIDE
     Dosage: 1000 MG UNK
     Route: 048
     Dates: end: 20200603
  3. LEVOTHYROXINE SODIUM, POTASSIUM IODIDE [Concomitant]
     Dosage: 0.196/0.1 MILLIGRAM, QD
     Route: 048
  4. SODIUM BICARBONATE [Concomitant]
     Active Substance: SODIUM BICARBONATE
     Dosage: 1 G QD
     Route: 048
  5. PANTOPRAZOLE SODIUM [Concomitant]
     Active Substance: PANTOPRAZOLE SODIUM
     Dosage: 40 MILLIGRAM
     Route: 048
  6. ALLOPURINOL [Concomitant]
     Active Substance: ALLOPURINOL
     Dosage: 100 MG QD
     Route: 048
  7. METAMIZOLE [Concomitant]
     Active Substance: METAMIZOLE
     Dosage: 500 MG TID
     Route: 048
  8. NALOXONE HYDROCHLORIDE\TILIDINE HYDROCHLORIDE [Concomitant]
     Active Substance: NALOXONE HYDROCHLORIDE\TILIDINE HYDROCHLORIDE
     Dosage: 4/50 MILLIGRAM, QD
     Route: 048
  9. BISOPROLOL [Concomitant]
     Active Substance: BISOPROLOL
     Dosage: 5 MG QD
     Route: 048

REACTIONS (5)
  - Metabolic acidosis [Recovering/Resolving]
  - Pain [Recovering/Resolving]
  - Renal impairment [Recovering/Resolving]
  - Hyponatraemia [Recovering/Resolving]
  - Acute kidney injury [Recovering/Resolving]
